FAERS Safety Report 24055747 (Version 1)
Quarter: 2024Q3

REPORT INFORMATION
  Report Type: Spontaneous
  Country: US (occurrence: None)
  Receive Date: 20240703
  Receipt Date: 20240703
  Transmission Date: 20241017
  Serious: Yes (Death)
  Sender: Public
  Company Number: None

PATIENT
  Age: 62 Year
  Sex: Male
  Weight: 112.05 kg

DRUGS (1)
  1. VICTOZA [Suspect]
     Active Substance: LIRAGLUTIDE
     Indication: Diabetes mellitus

REACTIONS (8)
  - Back pain [None]
  - Dyspepsia [None]
  - Nausea [None]
  - Vomiting [None]
  - Acute kidney injury [None]
  - Myocardial infarction [None]
  - Nasopharyngitis [None]
  - Pancreatic disorder [None]

NARRATIVE: CASE EVENT DATE: 20130330
